FAERS Safety Report 11088229 (Version 2)
Quarter: 2018Q4

REPORT INFORMATION
  Report Type: Spontaneous
  Country: CH (occurrence: US)
  Receive Date: 20150430
  Receipt Date: 20181213
  Transmission Date: 20190204
  Serious: No
  Sender: FDA-Public Use
  Company Number: US-H14001-15-00615

PATIENT
  Sex: Male

DRUGS (1)
  1. INFUMORPH [Suspect]
     Active Substance: MORPHINE SULFATE
     Indication: PRODUCT USED FOR UNKNOWN INDICATION
     Route: 037

REACTIONS (5)
  - Underdose [Recovered/Resolved]
  - Anosmia [Recovered/Resolved]
  - Drug withdrawal syndrome [Recovered/Resolved]
  - Implant site infection [Unknown]
  - Pain [Recovered/Resolved]

NARRATIVE: CASE EVENT DATE: 20150209
